FAERS Safety Report 26001081 (Version 1)
Quarter: 2025Q4

REPORT INFORMATION
  Report Type: Spontaneous
  Country: ZA (occurrence: ZA)
  Receive Date: 20251105
  Receipt Date: 20251105
  Transmission Date: 20260118
  Serious: Yes (Hospitalization, Other)
  Sender: NOVO NORDISK
  Company Number: ZA-NOVOPROD-1545083

PATIENT
  Age: 43 Year
  Sex: Female
  Weight: 78 kg

DRUGS (1)
  1. OZEMPIC [Suspect]
     Active Substance: SEMAGLUTIDE
     Indication: Product used for unknown indication
     Dosage: 1 MG
     Dates: end: 20250925

REACTIONS (7)
  - Feeding disorder [Unknown]
  - Vomiting [Unknown]
  - Abdominal pain upper [Not Recovered/Not Resolved]
  - Asthenia [Unknown]
  - Off label use [Recovered/Resolved]
  - Product label confusion [Unknown]
  - Product communication issue [Unknown]

NARRATIVE: CASE EVENT DATE: 20250919
